FAERS Safety Report 5455410-0 (Version None)
Quarter: 2007Q3

REPORT INFORMATION
  Report Type: 
  Country: None (occurrence: None)
  Receive Date: 20070918
  Receipt Date: 20070228
  Transmission Date: 20080115
  Serious: Yes (Disabling)
  Sender: FDA-Public Use
  Company Number: US-ASTRAZENECA-2006UW20845

PATIENT
  Age: 54 Year
  Sex: Male
  Weight: 84.1 kg

DRUGS (6)
  1. SEROQUEL [Suspect]
     Indication: SCHIZOPHRENIA
     Route: 048
  2. SEROQUEL [Suspect]
     Indication: BIPOLAR DISORDER
     Route: 048
  3. SEROQUEL [Suspect]
     Indication: DEPRESSION
     Route: 048
  4. GEODON [Concomitant]
     Dates: start: 20040101, end: 20060101
  5. HALDOL [Concomitant]
  6. ZYPREXA/SYMBYAX [Concomitant]

REACTIONS (1)
  - DIABETES MELLITUS [None]
